FAERS Safety Report 9236431 (Version 1)
Quarter: 2013Q2

REPORT INFORMATION
  Report Type: Spontaneous
  Country: FR (occurrence: FR)
  Receive Date: 20130417
  Receipt Date: 20130417
  Transmission Date: 20140414
  Serious: Yes (Other)
  Sender: FDA-Public Use
  Company Number: FR-009507513-1208FRA001155

PATIENT
  Age: 16 Year
  Sex: Female
  Weight: 41 kg

DRUGS (1)
  1. NEXPLANON [Suspect]
     Indication: CONTRACEPTION
     Dosage: 1 DF, UNK
     Route: 058
     Dates: start: 20120601

REACTIONS (2)
  - Premature delivery [Recovered/Resolved]
  - Pregnancy with implant contraceptive [Unknown]
